FAERS Safety Report 7391204-7 (Version None)
Quarter: 2011Q2

REPORT INFORMATION
  Report Type: 
  Country: None (occurrence: None)
  Receive Date: 20110404
  Receipt Date: 20100623
  Transmission Date: 20111010
  Serious: Yes (Other)
  Sender: FDA-Public Use
  Company Number: US-PFIZER INC-2010069182

PATIENT
  Sex: Female
  Weight: 68.027 kg

DRUGS (5)
  1. CYMBALTA [Suspect]
     Dosage: UNK
  2. ZOLOFT [Suspect]
     Dosage: 150 MG, UNK
     Dates: start: 20090101
  3. ZOLOFT [Suspect]
     Indication: ANXIETY
     Dosage: 50 MG, UNK
     Route: 048
     Dates: start: 19970101
  4. ZOLOFT [Suspect]
     Indication: DEPRESSION
     Dosage: 100 MG, UNK
     Route: 048
     Dates: start: 19990101
  5. PROZAC [Suspect]
     Dosage: UNK

REACTIONS (3)
  - ANXIETY [None]
  - DEPRESSION [None]
  - DRUG INEFFECTIVE [None]
